FAERS Safety Report 10240798 (Version 1)
Quarter: 2014Q2

REPORT INFORMATION
  Report Type: Spontaneous
  Country: US (occurrence: US)
  Receive Date: 20140617
  Receipt Date: 20140617
  Transmission Date: 20141212
  Serious: No
  Sender: FDA-Public Use
  Company Number: US-PFIZER INC-2014164700

PATIENT
  Age: 53 Year
  Sex: Female
  Weight: 83.9 kg

DRUGS (9)
  1. XELJANZ [Suspect]
     Indication: RHEUMATOID ARTHRITIS
     Dosage: 5 MG, 2X/DAY
     Route: 048
  2. PANTOPRAZOLE [Concomitant]
     Dosage: 40 MG, UNK
  3. PREMARIN [Concomitant]
     Dosage: 0.625 MG, UNK
  4. METHOTREXATE [Concomitant]
     Dosage: 2.5 MG, UNK
  5. FOLIC ACID [Concomitant]
     Dosage: 400 UG, UNK
  6. POTASSIUM [Concomitant]
     Dosage: 75 MG, UNK
  7. ESTER C + BIOFLAVONOIDS [Concomitant]
     Dosage: UNK
  8. ECHINACEA [Concomitant]
     Dosage: UNK
  9. ALEVE [Concomitant]
     Dosage: 220 MG, UNK

REACTIONS (2)
  - Drug ineffective [Unknown]
  - Insomnia [Unknown]
